FAERS Safety Report 23492402 (Version 2)
Quarter: 2024Q1

REPORT INFORMATION
  Report Type: Spontaneous
  Country: IT (occurrence: IT)
  Receive Date: 20240207
  Receipt Date: 20240315
  Transmission Date: 20240410
  Serious: Yes (Other)
  Sender: FDA-Public Use
  Company Number: IT-MEDEXUS PHARMA, INC.-2024MED00065

PATIENT
  Sex: Male

DRUGS (13)
  1. METHOTREXATE [Suspect]
     Active Substance: METHOTREXATE
     Indication: Testis cancer
     Dosage: 1.5 GR/M^2
     Route: 042
  2. METHOTREXATE [Suspect]
     Active Substance: METHOTREXATE
     Indication: Diffuse large B-cell lymphoma
  3. ENOXAPARIN SODIUM [Suspect]
     Active Substance: ENOXAPARIN SODIUM
     Indication: Deep vein thrombosis
     Dosage: 6000 X 2
  4. RITUXIMAB [Concomitant]
     Active Substance: RITUXIMAB
     Indication: Testis cancer
     Dosage: 375 MG/M^2/D, DAY 0 OR DAY 1
     Route: 042
  5. RITUXIMAB [Concomitant]
     Active Substance: RITUXIMAB
     Indication: Diffuse large B-cell lymphoma
  6. CYCLOPHOSPHAMIDE [Concomitant]
     Active Substance: CYCLOPHOSPHAMIDE
     Indication: Testis cancer
     Dosage: 750 MG/M^2/D; DAY 1
     Route: 042
  7. CYCLOPHOSPHAMIDE [Concomitant]
     Active Substance: CYCLOPHOSPHAMIDE
     Indication: Diffuse large B-cell lymphoma
  8. DOXORUBICIN [Concomitant]
     Active Substance: DOXORUBICIN
     Indication: Testis cancer
     Dosage: 50 MG/M^2/D; DAY 1
     Route: 042
  9. DOXORUBICIN [Concomitant]
     Active Substance: DOXORUBICIN
     Indication: Diffuse large B-cell lymphoma
  10. VINCRISTINE [Concomitant]
     Active Substance: VINCRISTINE
     Indication: Testis cancer
     Dosage: 1.4 MG/M^2/D; DAY 1 (MAXIMUM 2 MG)
     Route: 042
  11. VINCRISTINE [Concomitant]
     Active Substance: VINCRISTINE
     Indication: Diffuse large B-cell lymphoma
  12. PREDNISONE [Concomitant]
     Active Substance: PREDNISONE
     Indication: Testis cancer
     Dosage: 40 MG/M^2/D; DAY 1 TO [5]
     Route: 048
  13. PREDNISONE [Concomitant]
     Active Substance: PREDNISONE
     Indication: Diffuse large B-cell lymphoma

REACTIONS (1)
  - Haemorrhage intracranial [Unknown]
